FAERS Safety Report 9627946 (Version 3)
Quarter: 2013Q4

REPORT INFORMATION
  Report Type: Spontaneous
  Country: US (occurrence: US)
  Receive Date: 20131016
  Receipt Date: 20131118
  Transmission Date: 20140711
  Serious: Yes (Hospitalization, Disabling, Other)
  Sender: FDA-Public Use
  Company Number: US-009507513-1103USA01910

PATIENT
  Sex: Female
  Weight: 84.82 kg

DRUGS (5)
  1. FOSAMAX [Suspect]
     Indication: OSTEOPOROSIS
     Dosage: 10 MG, QD
     Route: 048
     Dates: start: 20001005
  2. FOSAMAX [Suspect]
     Indication: OSTEOPOROSIS PROPHYLAXIS
     Dosage: 70 MG, QW
     Route: 048
     Dates: start: 2002
  3. FOSAMAX [Suspect]
     Dosage: ^TAKE 1/2 OF A 70 MG TAB WEEKLY^
     Route: 048
     Dates: start: 20021022
  4. CALCIUM (UNSPECIFIED) [Concomitant]
     Dosage: 1500 MG, QD
  5. FOSAMAX [Suspect]
     Dosage: 70 MG, UNK
     Route: 048
     Dates: start: 20081103, end: 20091023

REACTIONS (47)
  - Intramedullary rod insertion [Unknown]
  - Intramedullary rod insertion [Unknown]
  - Disability [Not Recovered/Not Resolved]
  - Muscular weakness [Not Recovered/Not Resolved]
  - Balance disorder [Not Recovered/Not Resolved]
  - Asthenia [Not Recovered/Not Resolved]
  - Femur fracture [Recovering/Resolving]
  - Osteoarthritis [Unknown]
  - Gait disturbance [Unknown]
  - Low turnover osteopathy [Unknown]
  - Infection [Unknown]
  - Vitamin D deficiency [Unknown]
  - Incorrect dose administered [Unknown]
  - Drug administration error [Unknown]
  - Muscular weakness [Unknown]
  - Laceration [Unknown]
  - Sinus tachycardia [Unknown]
  - Leukocytosis [Unknown]
  - Subcutaneous abscess [Unknown]
  - Skin disorder [Unknown]
  - Labyrinthitis [Unknown]
  - Large intestine polyp [Unknown]
  - Lethargy [Unknown]
  - Dyspnoea exertional [Unknown]
  - C-reactive protein increased [Unknown]
  - Eczema [Unknown]
  - Bronchopneumonia [Unknown]
  - Dehydration [Unknown]
  - Bronchitis [Recovered/Resolved]
  - Osteoarthritis [Unknown]
  - Joint dislocation [Unknown]
  - Bone metabolism disorder [Unknown]
  - Accident [Unknown]
  - Bursitis [Unknown]
  - Iliotibial band syndrome [Unknown]
  - Pneumonia [Unknown]
  - Pulmonary fibrosis [Unknown]
  - Chronic obstructive pulmonary disease [Unknown]
  - Stress fracture [Unknown]
  - Medical device pain [Unknown]
  - Pyrexia [Unknown]
  - Pyrexia [Unknown]
  - Bone pain [Recovering/Resolving]
  - Dizziness [Unknown]
  - Nausea [Unknown]
  - Myalgia [Unknown]
  - Arthralgia [Unknown]
